FAERS Safety Report 6763216-5 (Version None)
Quarter: 2010Q2

REPORT INFORMATION
  Report Type: 
  Country: None (occurrence: None)
  Receive Date: 20100609
  Receipt Date: 20100602
  Transmission Date: 20101027
  Serious: Yes (Life-Threatening, Hospitalization, Other)
  Sender: FDA-Public Use
  Company Number: JP-ABBOTT-09P-087-0596044-00

PATIENT
  Sex: Female

DRUGS (15)
  1. HUMIRA [Suspect]
     Indication: RHEUMATOID ARTHRITIS
     Route: 058
     Dates: start: 20090601, end: 20090824
  2. PREDNISOLONE [Suspect]
     Indication: RHEUMATOID ARTHRITIS
     Dosage: 5 MG DAILY
     Route: 048
     Dates: start: 20090113, end: 20090902
  3. METHOTREXATE [Suspect]
     Indication: RHEUMATOID ARTHRITIS
     Route: 048
     Dates: start: 20090613, end: 20090902
  4. SALAZOSULFAPYRIDINE [Suspect]
     Indication: RHEUMATOID ARTHRITIS
     Dosage: 1000 MG DAILY
     Route: 048
     Dates: start: 20090113, end: 20090902
  5. FOLIC ACID [Concomitant]
     Indication: PROPHYLAXIS
     Dates: start: 20090113, end: 20090824
  6. FELBINAC [Concomitant]
     Indication: PAIN PROPHYLAXIS
     Dates: start: 20090113, end: 20090824
  7. DICLOFENAC SODIUM [Concomitant]
     Indication: RHEUMATOID ARTHRITIS
     Route: 054
     Dates: start: 20090113, end: 20090824
  8. MELOXICAM [Concomitant]
     Indication: OSTEOPOROSIS PROPHYLAXIS
     Dosage: 10 MG DAILY
     Route: 048
     Dates: start: 20090113, end: 20090824
  9. FAMOTIDINE [Concomitant]
     Indication: PROPHYLAXIS AGAINST GASTROINTESTINAL ULCER
     Dosage: 20 MG DAILY
     Route: 048
     Dates: start: 20090113, end: 20090902
  10. REBAMIPIDE [Concomitant]
     Indication: PROPHYLAXIS AGAINST GASTROINTESTINAL ULCER
     Route: 048
     Dates: start: 20090113, end: 20090902
  11. FUROSEMIDE [Concomitant]
     Indication: PROPHYLAXIS
     Route: 048
     Dates: start: 20090113, end: 20090902
  12. FUROSEMIDE [Concomitant]
     Indication: OEDEMA
  13. KETOPROFEN [Concomitant]
     Indication: RHEUMATOID ARTHRITIS
     Route: 062
     Dates: start: 20090113, end: 20090902
  14. PROCAINAMIDE HCL [Concomitant]
     Indication: ARRHYTHMIA
     Dosage: 250 MG DAILY
     Dates: start: 20090113, end: 20090902
  15. PROCAINAMIDE HCL [Concomitant]
     Indication: PROPHYLAXIS

REACTIONS (6)
  - ATRIAL FIBRILLATION [None]
  - DISSEMINATED INTRAVASCULAR COAGULATION [None]
  - PYELONEPHRITIS ACUTE [None]
  - SEPSIS [None]
  - SEPTIC SHOCK [None]
  - URINARY TRACT INFECTION [None]
